FAERS Safety Report 13506094 (Version 1)
Quarter: 2017Q2

REPORT INFORMATION
  Report Type: Spontaneous
  Country: US (occurrence: US)
  Receive Date: 20170502
  Receipt Date: 20170502
  Transmission Date: 20170830
  Serious: No
  Sender: FDA-Public Use
  Company Number: US-ROCHE-1468463

PATIENT
  Age: 71 Year
  Sex: Female

DRUGS (1)
  1. AVASTIN [Suspect]
     Active Substance: BEVACIZUMAB
     Indication: EYE SWELLING
     Dosage: EVERY MONTH X 4 MONTHS
     Route: 065
     Dates: start: 2011

REACTIONS (1)
  - Drug ineffective [Unknown]
